FAERS Safety Report 6453208-8 (Version None)
Quarter: 2009Q4

REPORT INFORMATION
  Report Type: 
  Country: None (occurrence: None)
  Receive Date: 20091123
  Receipt Date: 20091123
  Transmission Date: 20100525
  Serious: No
  Sender: FDA-Public Use
  Company Number: None

PATIENT
  Age: 40 Year
  Sex: Male
  Weight: 72.5755 kg

DRUGS (2)
  1. LEVAQUIN [Suspect]
     Indication: ESCHERICHIA INFECTION
     Dosage: 1 PILL PER DAY PO
     Route: 048
     Dates: start: 20010606, end: 20090607
  2. LEVAQUIN [Suspect]
     Indication: KIDNEY INFECTION
     Dosage: 1 PILL PER DAY PO
     Route: 048
     Dates: start: 20010606, end: 20090607

REACTIONS (7)
  - ACTIVITIES OF DAILY LIVING IMPAIRED [None]
  - ASTHENIA [None]
  - HALLUCINATION, VISUAL [None]
  - IMPAIRED WORK ABILITY [None]
  - MENTAL IMPAIRMENT [None]
  - MUSCULOSKELETAL STIFFNESS [None]
  - PAIN [None]
